FAERS Safety Report 4283583-4 (Version None)
Quarter: 2004Q1

REPORT INFORMATION
  Report Type: 
  Country: None (occurrence: None)
  Receive Date: 20040202
  Receipt Date: 20040115
  Transmission Date: 20041129
  Serious: No
  Sender: FDA-Public Use
  Company Number: FR-GLAXOSMITHKLINE-B0319926A

PATIENT
  Age: 58 Year
  Sex: Male
  Weight: 116 kg

DRUGS (6)
  1. AVANDIA [Suspect]
     Indication: DIABETES MELLITUS NON-INSULIN-DEPENDENT
     Route: 048
     Dates: start: 20030424, end: 20031228
  2. GLUCOPHAGE [Concomitant]
     Indication: DIABETES MELLITUS NON-INSULIN-DEPENDENT
     Dosage: 1000MG TWICE PER DAY
     Route: 048
     Dates: start: 20000101
  3. ATENOLOL [Concomitant]
     Dosage: 100MG PER DAY
     Dates: start: 20000101
  4. AMLOR [Concomitant]
     Dosage: 10MG PER DAY
     Route: 048
  5. FENOFIBRATE [Concomitant]
     Dosage: 300MG PER DAY
     Route: 048
  6. FOSINOPRIL SODIUM [Concomitant]
     Dosage: 20MG PER DAY
     Route: 048

REACTIONS (7)
  - DRUG INEFFECTIVE [None]
  - DRY MOUTH [None]
  - DYSURIA [None]
  - FATIGUE [None]
  - GLYCOSYLATED HAEMOGLOBIN INCREASED [None]
  - INSOMNIA [None]
  - POLLAKIURIA [None]
